FAERS Safety Report 20120427 (Version 1)
Quarter: 2021Q4

REPORT INFORMATION
  Report Type: Spontaneous
  Country: US (occurrence: US)
  Receive Date: 20211126
  Receipt Date: 20211126
  Transmission Date: 20220303
  Serious: Yes (Other)
  Sender: FDA-Public Use
  Company Number: US-FRESENIUS KABI-FK202113062

PATIENT
  Age: 64 Year
  Sex: Female

DRUGS (4)
  1. LEUCOVORIN CALCIUM [Suspect]
     Active Substance: LEUCOVORIN CALCIUM
     Indication: Pancreatic carcinoma metastatic
     Dosage: 8 CYCLES OF FOLFIRINOX REGIMEN
     Route: 065
     Dates: start: 201703, end: 201707
  2. FLUOROURACIL [Suspect]
     Active Substance: FLUOROURACIL
     Indication: Pancreatic carcinoma metastatic
     Dosage: 8 CYCLES OF FOLFIRINOX REGIMEN
     Route: 065
     Dates: start: 201703, end: 201707
  3. IRINOTECAN [Suspect]
     Active Substance: IRINOTECAN
     Indication: Pancreatic carcinoma metastatic
     Dosage: 8 CYCLES OF FOLFIRINOX REGIMEN
     Route: 065
     Dates: start: 201703, end: 201707
  4. OXALIPLATIN [Suspect]
     Active Substance: OXALIPLATIN
     Indication: Pancreatic carcinoma metastatic
     Dosage: 8 CYCLES OF FOLFIRINOX REGIMEN
     Route: 065
     Dates: start: 201703, end: 201707

REACTIONS (3)
  - Neutropenia [Unknown]
  - Anaemia [Unknown]
  - Thrombocytopenia [Unknown]
